FAERS Safety Report 22014067 (Version 3)
Quarter: 2023Q1

REPORT INFORMATION
  Report Type: Spontaneous
  Country: CN (occurrence: CN)
  Receive Date: 20230221
  Receipt Date: 20230227
  Transmission Date: 20230418
  Serious: Yes (Death)
  Sender: FDA-Public Use
  Company Number: CN-BIOGEN-2023BI01188374

PATIENT
  Age: 4 Year
  Sex: Male

DRUGS (14)
  1. SPINRAZA [Suspect]
     Active Substance: NUSINERSEN
     Indication: Spinal muscular atrophy
     Dosage: 1ST DOSE
     Route: 050
     Dates: start: 20191011
  2. SPINRAZA [Suspect]
     Active Substance: NUSINERSEN
     Dosage: 2ND DOSE
     Route: 050
     Dates: start: 20191025
  3. SPINRAZA [Suspect]
     Active Substance: NUSINERSEN
     Dosage: 3RD DOSE
     Route: 050
     Dates: start: 20191108
  4. SPINRAZA [Suspect]
     Active Substance: NUSINERSEN
     Dosage: 4TH DOSE
     Route: 050
     Dates: start: 20191213
  5. SPINRAZA [Suspect]
     Active Substance: NUSINERSEN
     Dosage: 5TH DOSE
     Route: 050
     Dates: start: 20200414
  6. SPINRAZA [Suspect]
     Active Substance: NUSINERSEN
     Dosage: 6TH DOSE
     Route: 050
     Dates: start: 20200813
  7. SPINRAZA [Suspect]
     Active Substance: NUSINERSEN
     Dosage: 7TH DOSE
     Route: 050
     Dates: start: 20201216
  8. SPINRAZA [Suspect]
     Active Substance: NUSINERSEN
     Dosage: 8TH DOSE
     Route: 050
     Dates: start: 20210412
  9. SPINRAZA [Suspect]
     Active Substance: NUSINERSEN
     Route: 050
     Dates: start: 20210812
  10. SPINRAZA [Suspect]
     Active Substance: NUSINERSEN
     Route: 050
     Dates: start: 20211210
  11. SPINRAZA [Suspect]
     Active Substance: NUSINERSEN
     Route: 050
     Dates: start: 20220409
  12. SPINRAZA [Suspect]
     Active Substance: NUSINERSEN
     Route: 050
     Dates: start: 20220807
  13. SPINRAZA [Suspect]
     Active Substance: NUSINERSEN
     Route: 050
     Dates: start: 20221212, end: 20221212
  14. SPINRAZA [Suspect]
     Active Substance: NUSINERSEN
     Route: 050
     Dates: start: 20191011, end: 20221212

REACTIONS (1)
  - Death [Fatal]

NARRATIVE: CASE EVENT DATE: 20221218
